FAERS Safety Report 21499203 (Version 1)
Quarter: 2022Q4

REPORT INFORMATION
  Report Type: Spontaneous
  Country: US (occurrence: None)
  Receive Date: 20221023
  Receipt Date: 20221023
  Transmission Date: 20230113
  Serious: Yes (unspecified)
  Sender: FDA-Public Use
  Company Number: None

PATIENT
  Age: 71 Year
  Sex: Female
  Weight: 66.2 kg

DRUGS (2)
  1. ACTIVASE [Suspect]
     Active Substance: ALTEPLASE
     Indication: Cerebrovascular accident
     Dosage: FREQUENCY : ONCE;?
     Route: 017
  2. ACTIVASE [Concomitant]
     Active Substance: ALTEPLASE
     Dates: start: 20221023, end: 20221023

REACTIONS (2)
  - Respiratory disorder [None]
  - Cardiac disorder [None]

NARRATIVE: CASE EVENT DATE: 20221023
